FAERS Safety Report 14382419 (Version 13)
Quarter: 2022Q4

REPORT INFORMATION
  Report Type: Spontaneous
  Country: PL (occurrence: PL)
  Receive Date: 20180112
  Receipt Date: 20221013
  Transmission Date: 20230112
  Serious: Yes (Other)
  Sender: FDA-Public Use
  Company Number: PL-MYLANLABS-2018M1003406

PATIENT
  Age: 70 Year
  Sex: Female

DRUGS (21)
  1. CLOZAPINE [Interacting]
     Active Substance: CLOZAPINE
     Indication: Hallucinations, mixed
     Dosage: UNK
     Route: 065
  2. RIVASTIGMINE [Interacting]
     Active Substance: RIVASTIGMINE
     Indication: Product used for unknown indication
     Dosage: UNK
     Route: 065
  3. AMITRIPTYLINE [Interacting]
     Active Substance: AMITRIPTYLINE
     Indication: Depression
     Dosage: 25 MG, QD
     Route: 065
  4. AMITRIPTYLINE [Interacting]
     Active Substance: AMITRIPTYLINE
     Indication: Sleep disorder
     Dosage: UNK
     Route: 065
  5. OXYBUTYNIN [Interacting]
     Active Substance: OXYBUTYNIN
     Indication: Urinary incontinence
     Dosage: 15 MG, TID, 5 MG, 3X/DAY (TID)
     Route: 065
  6. OXYBUTYNIN [Interacting]
     Active Substance: OXYBUTYNIN
     Dosage: 5 MILLIGRAM, QD
     Route: 065
  7. RASAGILINE MESYLATE [Interacting]
     Active Substance: RASAGILINE MESYLATE
     Indication: Parkinson^s disease
     Dosage: 1 MG, AM, 1 MG AT THE MORNING
     Route: 065
  8. ROPINIROLE [Interacting]
     Active Substance: ROPINIROLE
     Indication: Parkinson^s disease
     Dosage: 8 AM, QD, 8 MG ONES DAILY (AT THE MORNING), THEN THE DOSE REDUCED BY 2 MG
     Route: 048
  9. ROPINIROLE [Interacting]
     Active Substance: ROPINIROLE
     Dosage: 6 MG, QD, DOSE REDUCED BY 2 MG
     Route: 048
  10. ROPINIROLE [Interacting]
     Active Substance: ROPINIROLE
     Dosage: 2 MILLIGRAM, QD
     Route: 048
  11. ROPINIROLE [Interacting]
     Active Substance: ROPINIROLE
     Dosage: UNK, DOSE REDUCED BY 2 MG
     Route: 065
  12. HYDROXYZINE [Interacting]
     Active Substance: HYDROXYZINE HYDROCHLORIDE
     Indication: Anxiety disorder
     Dosage: 25 MILLIGRAM, QD, 25 MG AD HOC ADMINISTERED DUE TO ANXIETY DISORDERS
     Route: 065
  13. HYDROXYZINE [Interacting]
     Active Substance: HYDROXYZINE HYDROCHLORIDE
     Indication: Hallucination
  14. CARBIDOPA\LEVODOPA [Interacting]
     Active Substance: CARBIDOPA\LEVODOPA
     Indication: Parkinson^s disease
     Dosage: LEVODOPA 100/CARBIDOPA 25 MG, QID ((AT 7.00, 11.00, 15.00, 19.00)
     Route: 065
  15. CARBIDOPA\LEVODOPA [Interacting]
     Active Substance: CARBIDOPA\LEVODOPA
     Dosage: 1 DOSAGE FORM, QID, LEVODOPA 200/CARBIDOPA 50 MG 4 TIMES A DAY AT 7.00AM, 11.00AM, 3.00PM, 7.00PM
     Route: 065
  16. CARBIDOPA\LEVODOPA [Interacting]
     Active Substance: CARBIDOPA\LEVODOPA
     Dosage: 1 DOSAGE FORM, QD, LEVODOPA 200/CARBIDOPA 50 MG A DAY (AT 10.00 PM
     Route: 065
  17. AMANTADINE [Interacting]
     Active Substance: AMANTADINE
     Indication: Parkinson^s disease
     Dosage: 200 MILLIGRAM, BID, 100 MG TWICE DAILY (AT MORNING AND AT NOON)
     Route: 065
  18. AMANTADINE [Interacting]
     Active Substance: AMANTADINE
     Dosage: 100 MILLIGRAM, QD
     Route: 065
  19. BIPERIDEN [Interacting]
     Active Substance: BIPERIDEN
     Indication: Parkinson^s disease
     Dosage: 4 MG, QD
     Route: 065
  20. BIPERIDEN [Interacting]
     Active Substance: BIPERIDEN
     Dosage: 2 MILLIGRAM, BID, 2 MG, 2X/DAY (BID)
     Route: 065
  21. AMOXICILLIN [Concomitant]
     Active Substance: AMOXICILLIN
     Indication: Pneumonia
     Dosage: UNK
     Route: 065

REACTIONS (16)
  - Mental impairment [Unknown]
  - Pneumonia [Unknown]
  - Cerebral atrophy [Unknown]
  - Parkinson^s disease [Unknown]
  - Hallucinations, mixed [Recovered/Resolved]
  - Anxiety [Unknown]
  - C-reactive protein increased [Unknown]
  - Neutrophil count increased [Unknown]
  - Labelled drug-drug interaction medication error [Unknown]
  - Psychotic symptom [Unknown]
  - Musculoskeletal stiffness [Unknown]
  - Bradykinesia [Unknown]
  - Dementia [Unknown]
  - On and off phenomenon [Unknown]
  - Leukocytosis [Unknown]
  - Resting tremor [Unknown]
